FAERS Safety Report 20326417 (Version 1)
Quarter: 2022Q1

REPORT INFORMATION
  Report Type: Spontaneous
  Country: FR (occurrence: FR)
  Receive Date: 20220112
  Receipt Date: 20220112
  Transmission Date: 20220424
  Serious: Yes (Other)
  Sender: FDA-Public Use
  Company Number: None

PATIENT
  Age: 73 Year
  Sex: Female
  Weight: 38 kg

DRUGS (5)
  1. CARBOPLATIN [Suspect]
     Active Substance: CARBOPLATIN
     Indication: Ovarian cancer
     Dosage: STRENGTH: 10 MG / ML, 93MG
     Route: 042
     Dates: start: 20180130, end: 20211019
  2. TRANXENE [Concomitant]
     Active Substance: CLORAZEPATE DIPOTASSIUM
     Indication: Chemotherapy side effect prophylaxis
     Dosage: STRENGTH: 20 MG / 2 ML, 20MG
     Route: 042
  3. PACLITAXEL [Concomitant]
     Active Substance: PACLITAXEL
     Indication: Ovarian cancer
     Dosage: STRENGTH: 6 MG / ML, 96MG
     Route: 042
     Dates: start: 20180130
  4. ONDANSETRON [Concomitant]
     Active Substance: ONDANSETRON
     Indication: Chemotherapy side effect prophylaxis
     Dosage: STRENGTH:  2 MG/ML, 4MG
     Route: 042
     Dates: start: 20180130
  5. SOLU-MEDROL [Concomitant]
     Active Substance: METHYLPREDNISOLONE SODIUM SUCCINATE
     Indication: Chemotherapy side effect prophylaxis
     Dosage: STRENGTH: 120 MG / 2 ML, 60MG
     Route: 042
     Dates: start: 20180130

REACTIONS (1)
  - Anaphylactoid reaction [Recovered/Resolved]

NARRATIVE: CASE EVENT DATE: 20211019
